FAERS Safety Report 7393775-3 (Version None)
Quarter: 2011Q1

REPORT INFORMATION
  Report Type: 
  Country: None (occurrence: None)
  Receive Date: 20110330
  Receipt Date: 20110330
  Transmission Date: 20110831
  Serious: Yes (Other)
  Sender: FDA-Public Use
  Company Number: None

PATIENT
  Age: 8 Year
  Sex: Male
  Weight: 18.1439 kg

DRUGS (2)
  1. ADDERALL XR 10 [Suspect]
     Indication: ATTENTION DEFICIT/HYPERACTIVITY DISORDER
     Dosage: 5MG 1X
  2. ADDERALL 10 [Suspect]
     Dosage: 10MG 1X

REACTIONS (8)
  - PALPITATIONS [None]
  - INSOMNIA [None]
  - ABNORMAL BEHAVIOUR [None]
  - ANXIETY [None]
  - DECREASED APPETITE [None]
  - TACHYPHRENIA [None]
  - ANGER [None]
  - AGGRESSION [None]
